FAERS Safety Report 4353934-0 (Version None)
Quarter: 2004Q2

REPORT INFORMATION
  Report Type: 
  Country: None (occurrence: None)
  Receive Date: 20040506
  Receipt Date: 20040127
  Transmission Date: 20050107
  Serious: No
  Sender: FDA-Public Use
  Company Number: US-GLAXOSMITHKLINE-A0495811A

PATIENT
  Sex: Male

DRUGS (2)
  1. AVANDAMET [Suspect]
     Route: 048
     Dates: start: 20030918
  2. HUMALOG [Concomitant]

REACTIONS (2)
  - HEPATIC ENZYME INCREASED [None]
  - WEIGHT INCREASED [None]
